FAERS Safety Report 6435934-X (Version None)
Quarter: 2009Q4

REPORT INFORMATION
  Report Type: 
  Country: None (occurrence: None)
  Receive Date: 20091111
  Receipt Date: 20091102
  Transmission Date: 20100525
  Serious: Yes (Hospitalization)
  Sender: FDA-Public Use
  Company Number: GXKR2009GB12040

PATIENT
  Age: 28 Year
  Sex: Female

DRUGS (2)
  1. IRINOTECAN (NGX) [Suspect]
     Dosage: UNK
     Dates: start: 20081222
  2. CETUXIMAB [Suspect]
     Dosage: UNK
     Route: 065
     Dates: start: 20081224

REACTIONS (3)
  - COMPLEX PARTIAL SEIZURES [None]
  - ENCEPHALOPATHY [None]
  - HEADACHE [None]
